FAERS Safety Report 23381075 (Version 2)
Quarter: 2024Q1

REPORT INFORMATION
  Report Type: Spontaneous
  Country: GB (occurrence: GB)
  Receive Date: 20240109
  Receipt Date: 20240118
  Transmission Date: 20240410
  Serious: Yes (Other)
  Sender: FDA-Public Use
  Company Number: GB-ALKEM LABORATORIES LIMITED-GB-ALKEM-2023-16879

PATIENT
  Age: 77 Year
  Sex: Male

DRUGS (2)
  1. AZATHIOPRINE [Suspect]
     Active Substance: AZATHIOPRINE
     Indication: Crohn^s disease
     Dosage: UNK (LONG TERM)
     Route: 065
  2. OLSALAZINE [Concomitant]
     Active Substance: OLSALAZINE
     Indication: Crohn^s disease
     Dosage: UNK
     Route: 048

REACTIONS (1)
  - Follicular lymphoma [Recovered/Resolved]
